FAERS Safety Report 5422982-1 (Version None)
Quarter: 2007Q3

REPORT INFORMATION
  Report Type: 
  Country: None (occurrence: None)
  Receive Date: 20070822
  Receipt Date: 20070815
  Transmission Date: 20080115
  Serious: Yes (Other)
  Sender: FDA-Public Use
  Company Number: US-MERCK-0706USA05040

PATIENT
  Age: 38 Year
  Sex: Female
  Weight: 82 kg

DRUGS (4)
  1. JANUVIA [Suspect]
     Indication: TYPE 2 DIABETES MELLITUS
     Route: 048
     Dates: start: 20070601, end: 20070601
  2. ARMOUR THYROID TABLETS [Concomitant]
     Indication: THYROID DISORDER
     Route: 048
  3. ADVAIR DISKUS 100/50 [Concomitant]
     Indication: ASTHMA
  4. SINGULAIR 10 [Concomitant]
     Indication: ASTHMA
     Route: 048

REACTIONS (2)
  - ASTHMA [None]
  - NASOPHARYNGITIS [None]
